FAERS Safety Report 6906135-3 (Version None)
Quarter: 2010Q3

REPORT INFORMATION
  Report Type: 
  Country: None (occurrence: None)
  Receive Date: 20100803
  Receipt Date: 20100803
  Transmission Date: 20110219
  Serious: Yes (Life-Threatening, Hospitalization, Other)
  Sender: FDA-Public Use
  Company Number: None

PATIENT
  Age: 43 Year
  Sex: Male
  Weight: 68.0396 kg

DRUGS (1)
  1. SEROQUEL [Suspect]
     Indication: MENTAL DISORDER

REACTIONS (1)
  - NO ADVERSE EVENT [None]
